FAERS Safety Report 7879405-2 (Version None)
Quarter: 2011Q4

REPORT INFORMATION
  Report Type: 
  Country: None (occurrence: None)
  Receive Date: 20111101
  Receipt Date: 20111027
  Transmission Date: 20120403
  Serious: Yes (Death)
  Sender: FDA-Public Use
  Company Number: JP-ASTRAZENECA-2011SE62516

PATIENT
  Age: 78 Year
  Sex: Male
  Weight: 67 kg

DRUGS (8)
  1. LEVOFLOXACIN [Concomitant]
     Indication: PNEUMONIA BACTERIAL
     Route: 048
     Dates: start: 20110929, end: 20111002
  2. LASIX [Suspect]
     Indication: CARDIAC FAILURE CONGESTIVE
     Route: 041
     Dates: start: 20110901
  3. FOSCAVIR [Suspect]
     Indication: PNEUMONIA CYTOMEGALOVIRAL
     Route: 041
     Dates: start: 20110927, end: 20111001
  4. AMBISOME [Suspect]
     Indication: FUNGAL INFECTION
     Route: 041
     Dates: start: 20110929
  5. SULFAMETHOXAZOLE [Suspect]
     Indication: PNEUMOCYSTIS JIROVECI PNEUMONIA
     Route: 048
     Dates: start: 20110929, end: 20111002
  6. NEORAL [Suspect]
     Indication: APLASTIC ANAEMIA
     Route: 048
     Dates: start: 20110711, end: 20110930
  7. PIPERACILLIN SODIUM [Concomitant]
     Indication: PNEUMONIA BACTERIAL
     Route: 041
     Dates: start: 20110929, end: 20111003
  8. SANDOGLOBULIN [Concomitant]
     Indication: PNEUMONIA CYTOMEGALOVIRAL
     Route: 041
     Dates: start: 20110927, end: 20110928

REACTIONS (2)
  - PNEUMONIA CYTOMEGALOVIRAL [None]
  - RENAL FAILURE ACUTE [None]
